FAERS Safety Report 9615073 (Version 1)
Quarter: 2013Q4

REPORT INFORMATION
  Report Type: Spontaneous
  Country: US (occurrence: US)
  Receive Date: 20131011
  Receipt Date: 20131011
  Transmission Date: 20140711
  Serious: No
  Sender: FDA-Public Use
  Company Number: US-PFIZER INC-2013289765

PATIENT
  Sex: 0

DRUGS (1)
  1. SUTENT [Suspect]
     Indication: NEOPLASM MALIGNANT
     Dosage: UNK
     Dates: start: 201302, end: 201307

REACTIONS (2)
  - Disease progression [Unknown]
  - Neoplasm malignant [Unknown]
